FAERS Safety Report 12869899 (Version 1)
Quarter: 2016Q4

REPORT INFORMATION
  Report Type: Spontaneous
  Country: GB (occurrence: GB)
  Receive Date: 20161021
  Receipt Date: 20161021
  Transmission Date: 20170207
  Serious: Yes (Other)
  Sender: FDA-Public Use
  Company Number: GB-009507513-1610GBR010211

PATIENT
  Age: 3 Year
  Sex: Female
  Weight: 18 kg

DRUGS (4)
  1. VENTOLIN [Concomitant]
     Active Substance: ALBUTEROL SULFATE
  2. SERETIDE [Concomitant]
     Active Substance: FLUTICASONE PROPIONATE\SALMETEROL XINAFOATE
     Dosage: 125
  3. COUGH, COLD, AND FLU THERAPIES (UNSPECIFIED) [Concomitant]
     Active Substance: UNSPECIFIED INGREDIENT
  4. SINGULAIR [Suspect]
     Active Substance: MONTELUKAST SODIUM
     Indication: ASTHMA
     Dosage: 1 DF, QD
     Route: 048
     Dates: start: 20150904, end: 20160102

REACTIONS (10)
  - Anger [Recovered/Resolved with Sequelae]
  - Emotional disorder [Recovered/Resolved with Sequelae]
  - Depressed mood [Recovered/Resolved]
  - Feeling abnormal [Recovered/Resolved with Sequelae]
  - Asthma [Recovering/Resolving]
  - Personality change [Recovered/Resolved with Sequelae]
  - Aggression [Recovered/Resolved with Sequelae]
  - Cough [Recovered/Resolved with Sequelae]
  - Antisocial behaviour [Recovered/Resolved]
  - Sleep terror [Recovered/Resolved with Sequelae]

NARRATIVE: CASE EVENT DATE: 20151028
